FAERS Safety Report 18085988 (Version 1)
Quarter: 2020Q3

REPORT INFORMATION
  Report Type: Spontaneous
  Country: NG (occurrence: NG)
  Receive Date: 20200727
  Receipt Date: 20200727
  Transmission Date: 20201103
  Serious: Yes (Other)
  Sender: FDA-Public Use
  Company Number: None

PATIENT
  Sex: Female
  Weight: 176 kg

DRUGS (1)
  1. RELOAD [DIETARY SUPPLEMENT] [Suspect]
     Active Substance: DIETARY SUPPLEMENT

REACTIONS (3)
  - Vulvovaginal dryness [None]
  - Drug ineffective [None]
  - Rotavirus infection [None]

NARRATIVE: CASE EVENT DATE: 20191007
